FAERS Safety Report 21234077 (Version 1)
Quarter: 2022Q3

REPORT INFORMATION
  Report Type: Spontaneous
  Country: US (occurrence: US)
  Receive Date: 20220819
  Receipt Date: 20220819
  Transmission Date: 20221027
  Serious: No
  Sender: FDA-Public Use
  Company Number: US-MYLANLABS-2022M1078383

PATIENT

DRUGS (1)
  1. ARMODAFINIL [Suspect]
     Active Substance: ARMODAFINIL
     Indication: Obstructive sleep apnoea syndrome
     Dosage: 250 MILLIGRAM, QD
     Route: 065

REACTIONS (4)
  - Drug ineffective [Unknown]
  - Quality of life decreased [Unknown]
  - Fatigue [Unknown]
  - Product substitution issue [Unknown]
